FAERS Safety Report 15133221 (Version 1)
Quarter: 2018Q3

REPORT INFORMATION
  Report Type: Spontaneous
  Country: FR (occurrence: FR)
  Receive Date: 20180712
  Receipt Date: 20180712
  Transmission Date: 20181010
  Serious: Yes (Other)
  Sender: FDA-Public Use
  Company Number: FR-TEVA-2018-FR-924337

PATIENT
  Age: 73 Year
  Sex: Male
  Weight: 117 kg

DRUGS (5)
  1. ETOPOSIDE TEVA [Suspect]
     Active Substance: ETOPOSIDE
     Indication: NEUROENDOCRINE CARCINOMA OF THE SKIN
     Dosage: 200 MILLIGRAM DAILY;
     Route: 042
     Dates: start: 20180108
  2. ONDANSETRON ACCORD [Concomitant]
     Active Substance: ONDANSETRON
     Route: 065
  3. EMEND [Concomitant]
     Active Substance: APREPITANT
     Route: 065
  4. METHYLPREDNISOLONE MYLAN [Concomitant]
     Active Substance: METHYLPREDNISOLONE
     Route: 065
  5. CARBOPLATINE HOSPIRA [Suspect]
     Active Substance: CARBOPLATIN
     Indication: NEUROENDOCRINE CARCINOMA OF THE SKIN
     Dosage: 820 MILLIGRAM DAILY;
     Route: 042
     Dates: start: 20180108

REACTIONS (1)
  - Agranulocytosis [Recovered/Resolved]

NARRATIVE: CASE EVENT DATE: 20180129
